FAERS Safety Report 9538591 (Version 1)
Quarter: 2013Q2

REPORT INFORMATION
  Report Type: Spontaneous
  Country: US (occurrence: None)
  Receive Date: 20130507
  Receipt Date: 20130507
  Transmission Date: 20140414
  Serious: No
  Sender: FDA-Public Use
  Company Number: PHEH2013US001570

PATIENT
  Sex: Female
  Weight: 49 kg

DRUGS (4)
  1. AFINITOR (RAD) TABLET, 10MG [Suspect]
     Indication: NEUROENDOCRINE TUMOUR
     Dosage: 10 MG, DAILY, ORAL
     Route: 048
  2. FENTANYL (FENTANYL) [Concomitant]
  3. PROCHLORPERAZINE (PROCHLORPERAZINE) [Concomitant]
  4. MORPHINE SULFATE (MORPHINE SULFATE) INJECTION [Concomitant]

REACTIONS (1)
  - Dyspnoea [None]
